FAERS Safety Report 11539438 (Version 2)
Quarter: 2015Q4

REPORT INFORMATION
  Report Type: Spontaneous
  Country: TR (occurrence: TR)
  Receive Date: 20150923
  Receipt Date: 20151002
  Transmission Date: 20160304
  Serious: Yes (Hospitalization)
  Sender: FDA-Public Use
  Company Number: TR-SA-2015SA140982

PATIENT
  Age: 64 Year
  Sex: Male

DRUGS (1)
  1. BCG FOR IMMUNOTHERAPY [Suspect]
     Active Substance: BACILLUS CALMETTE-GUERIN ANTIGEN, UNSPECIFIED SUBSTRAIN
     Indication: BLADDER CANCER
     Dosage: THE FOURTH DOSE OF WHICH HE RECEIVED TWO WEEKS BEFORE THE ONSET
     Route: 043

REACTIONS (8)
  - Pyrexia [Recovered/Resolved]
  - Arthritis reactive [Recovered/Resolved]
  - Musculoskeletal stiffness [Recovered/Resolved]
  - Microcytic anaemia [Recovered/Resolved]
  - Joint swelling [Recovered/Resolved]
  - Arthralgia [Recovered/Resolved]
  - Back pain [Recovered/Resolved]
  - Arthritis [Recovered/Resolved]
